FAERS Safety Report 5457307-9 (Version None)
Quarter: 2007Q3

REPORT INFORMATION
  Report Type: 
  Country: None (occurrence: None)
  Receive Date: 20070918
  Receipt Date: 20070906
  Transmission Date: 20080115
  Serious: Yes (Hospitalization)
  Sender: FDA-Public Use
  Company Number: GB-PFIZER INC-2007066016

PATIENT
  Sex: Female
  Weight: 78 kg

DRUGS (5)
  1. ISTIN [Suspect]
     Indication: TRANSIENT ISCHAEMIC ATTACK
     Route: 048
  2. AMLODIPINE [Suspect]
     Route: 048
  3. ASPIRIN [Concomitant]
     Dosage: DAILY DOSE:75MG
     Route: 048
  4. BENDROFLUMETHIAZIDE [Concomitant]
     Dosage: DAILY DOSE:2.5MG
     Route: 048
  5. EZETIMIBE [Concomitant]
     Dosage: DAILY DOSE:10MG
     Route: 048

REACTIONS (4)
  - CAROTID ARTERY BYPASS [None]
  - CEREBROVASCULAR ACCIDENT [None]
  - DEPRESSION [None]
  - MALAISE [None]
